FAERS Safety Report 9160480 (Version 1)
Quarter: 2013Q1

REPORT INFORMATION
  Report Type: Spontaneous
  Country: FR (occurrence: None)
  Receive Date: 20130215
  Receipt Date: 20130215
  Transmission Date: 20140127
  Serious: Yes (Hospitalization)
  Sender: FDA-Public Use
  Company Number: SYM-2013-00476

PATIENT
  Age: 63 Year
  Sex: Male
  Weight: 52 kg

DRUGS (5)
  1. 5-FU [Suspect]
     Indication: RECTAL CANCER
     Route: 040
     Dates: start: 20120717, end: 20120717
  2. ELPLAT [Suspect]
     Indication: RECTAL CANCER
     Route: 041
     Dates: start: 20120717, end: 20120717
  3. MONOCLONAL ANTIBODIES (MONOCLONAL ANTIBODIES) (UNKNOWN) [Concomitant]
  4. CALCIUM LEVOFOLINATE (CALCIUM LEVOFOLINATE) (UNKNOWN) (CALCIUM LEVOFOLINATE) [Concomitant]
  5. MAGNESIUM SULFATE (MAGNESIUM SULFATE) (UNKNOWN)(MAGNESIUM SULFATE) [Concomitant]

REACTIONS (6)
  - Fall [None]
  - White blood cell count decreased [None]
  - Neutrophil count decreased [None]
  - Muscular weakness [None]
  - Decreased appetite [None]
  - Fibrin degradation products increased [None]
